FAERS Safety Report 20307257 (Version 1)
Quarter: 2022Q1

REPORT INFORMATION
  Report Type: Spontaneous
  Country: US (occurrence: None)
  Receive Date: 20220107
  Receipt Date: 20220107
  Transmission Date: 20220423
  Serious: Yes (Other)
  Sender: FDA-Public Use
  Company Number: US-ROCHE-2993580

PATIENT
  Age: 63 Year
  Sex: Female
  Weight: 82.628 kg

DRUGS (1)
  1. OCREVUS [Suspect]
     Active Substance: OCRELIZUMAB
     Indication: Relapsing multiple sclerosis
     Dosage: YES
     Route: 065
     Dates: start: 202101

REACTIONS (7)
  - Hypertension [Unknown]
  - Blood urine present [Unknown]
  - Multiple sclerosis [Unknown]
  - Blood triglycerides increased [Unknown]
  - Upper respiratory tract infection [Unknown]
  - Sinusitis [Unknown]
  - Bladder discomfort [Unknown]

NARRATIVE: CASE EVENT DATE: 20210901
